FAERS Safety Report 4732071-7 (Version None)
Quarter: 2005Q3

REPORT INFORMATION
  Report Type: 
  Country: None (occurrence: None)
  Receive Date: 20050722
  Receipt Date: 20040701
  Transmission Date: 20060218
  Serious: Yes (Hospitalization)
  Sender: FDA-Public Use
  Company Number: 04P-163-0265562-00

PATIENT
  Age: 48 Year
  Sex: Male

DRUGS (8)
  1. NORVIR [Suspect]
     Indication: ACQUIRED IMMUNODEFICIENCY SYNDROME
     Dosage: 100 MG
     Dates: start: 20040601, end: 20040629
  2. NORVIR [Suspect]
     Indication: HIV INFECTION
     Dosage: 100 MG
     Dates: start: 20040601, end: 20040629
  3. TENOFOVIR (TENOFOVIR) [Suspect]
     Indication: ACQUIRED IMMUNODEFICIENCY SYNDROME
     Dates: start: 20040601, end: 20040629
  4. TENOFOVIR (TENOFOVIR) [Suspect]
     Indication: HIV INFECTION
     Dates: start: 20040601, end: 20040629
  5. METOPROLOL [Concomitant]
  6. ATORVASTATIN CALCIUM [Concomitant]
  7. LISINOPRIL [Concomitant]
  8. ATAZANAVIR [Concomitant]

REACTIONS (4)
  - AZOTAEMIA [None]
  - DRUG INTERACTION [None]
  - DRUG LEVEL INCREASED [None]
  - RENAL FAILURE ACUTE [None]
